FAERS Safety Report 10185702 (Version 1)
Quarter: 2014Q2

REPORT INFORMATION
  Report Type: Spontaneous
  Country: US (occurrence: US)
  Receive Date: 20140521
  Receipt Date: 20140521
  Transmission Date: 20141212
  Serious: No
  Sender: FDA-Public Use
  Company Number: US-ASTRAZENECA-2014SE26487

PATIENT
  Age: 54 Year
  Sex: Male
  Weight: 131.5 kg

DRUGS (7)
  1. PULMICORT FLEXHALER [Suspect]
     Indication: ASTHMA
     Dosage: 180 MCG BID
     Route: 055
     Dates: start: 201402
  2. SYMBICORT  PMDI [Suspect]
     Indication: ASTHMA
     Dosage: 2 PUFFS BID
     Route: 055
     Dates: end: 201402
  3. LISINOPRIL [Suspect]
     Indication: BLOOD PRESSURE
     Route: 048
  4. PROVENTIL [Suspect]
     Route: 065
  5. METFORMIN [Concomitant]
     Indication: GLUCOSE TOLERANCE IMPAIRED
     Route: 048
     Dates: start: 201402
  6. AMLODIPINE [Concomitant]
     Indication: BLOOD PRESSURE ABNORMAL
     Route: 048
  7. SINGULAIR [Concomitant]
     Indication: BLOOD PRESSURE ABNORMAL
     Route: 048

REACTIONS (2)
  - Wheezing [Unknown]
  - Intentional product misuse [Unknown]
